FAERS Safety Report 6788936-8 (Version None)
Quarter: 2010Q2

REPORT INFORMATION
  Report Type: 
  Country: None (occurrence: None)
  Receive Date: 20100623
  Receipt Date: 20080603
  Transmission Date: 20101027
  Serious: No
  Sender: FDA-Public Use
  Company Number: US-PFIZER INC-2008046923

PATIENT
  Sex: Female
  Weight: 61.23 kg

DRUGS (2)
  1. XALATAN [Suspect]
     Indication: GLAUCOMA
     Route: 047
     Dates: start: 20060101
  2. CALCIUM CARBONATE [Concomitant]

REACTIONS (2)
  - DRY MOUTH [None]
  - HEADACHE [None]
